FAERS Safety Report 9413581 (Version 1)
Quarter: 2013Q2

REPORT INFORMATION
  Report Type: Spontaneous
  Country: IT (occurrence: IT)
  Receive Date: 20130625
  Receipt Date: 20130625
  Transmission Date: 20140414
  Serious: Yes (Other)
  Sender: FDA-Public Use
  Company Number: A20130035

PATIENT
  Sex: Female

DRUGS (1)
  1. ARTZ (SODIUM HYALURONATE) [Suspect]
     Indication: OSTEOARTHRITIS
     Route: 014
     Dates: start: 201202, end: 20130305

REACTIONS (5)
  - Arthritis bacterial [None]
  - Pyrexia [None]
  - Injection site infection [None]
  - Injection site joint swelling [None]
  - Arthralgia [None]
